FAERS Safety Report 11250138 (Version 2)
Quarter: 2015Q3

REPORT INFORMATION
  Report Type: Spontaneous
  Country: US (occurrence: US)
  Receive Date: 20150708
  Receipt Date: 20150803
  Transmission Date: 20151125
  Serious: No
  Sender: FDA-Public Use
  Company Number: US-ELI_LILLY_AND_COMPANY-US200907001852

PATIENT
  Age: 57 Year
  Sex: Female
  Weight: 108.84 kg

DRUGS (14)
  1. TOPAMAX [Concomitant]
     Active Substance: TOPIRAMATE
     Dosage: 100 MG, 2/D
  2. SYMBYAX [Suspect]
     Active Substance: FLUOXETINE HYDROCHLORIDE\OLANZAPINE
     Dosage: 1 D/F, EACH EVENING
     Route: 048
  3. PROVIGIL [Concomitant]
     Active Substance: MODAFINIL
     Dosage: 100 MG, DAILY (1/D)
  4. AMBIEN [Concomitant]
     Active Substance: ZOLPIDEM TARTRATE
     Dosage: 10 MG, EACH EVENING
  5. AMBIEN [Concomitant]
     Active Substance: ZOLPIDEM TARTRATE
     Dosage: 20 MG, EACH EVENING
  6. VICODIN [Concomitant]
     Active Substance: ACETAMINOPHEN\HYDROCODONE BITARTRATE
     Indication: PAIN
     Dosage: 1 D/F, AS NEEDED
  7. CORTISONE [Concomitant]
     Active Substance: CORTISONE\HYDROCORTISONE
  8. CALCIUM [Concomitant]
     Active Substance: CALCIUM
  9. ZYPREXA [Suspect]
     Active Substance: OLANZAPINE
     Dosage: 10 MG, EACH EVENING
     Dates: end: 20040518
  10. ZOLOFT [Concomitant]
     Active Substance: SERTRALINE HYDROCHLORIDE
     Dosage: 200 MG, DAILY (1/D)
  11. WELLBUTRIN XL [Concomitant]
     Active Substance: BUPROPION HYDROCHLORIDE
     Dosage: 300 MG, DAILY (1/D)
  12. SYNVISC [Concomitant]
     Active Substance: HYALURONATE SODIUM
     Indication: ARTHRALGIA
  13. PROVIGIL [Concomitant]
     Active Substance: MODAFINIL
     Dosage: 200 MG, EACH MORNING
  14. HYDROCODONE [Concomitant]
     Active Substance: HYDROCODONE
     Dosage: 1 D/F, AS NEEDED

REACTIONS (3)
  - General physical health deterioration [Unknown]
  - Insomnia [Unknown]
  - Nightmare [Unknown]

NARRATIVE: CASE EVENT DATE: 200406
